FAERS Safety Report 23736789 (Version 3)
Quarter: 2024Q2

REPORT INFORMATION
  Report Type: Spontaneous
  Country: US (occurrence: US)
  Receive Date: 20240412
  Receipt Date: 20240528
  Transmission Date: 20240716
  Serious: Yes (Other)
  Sender: FDA-Public Use
  Company Number: US-002147023-NVSC2024US077799

PATIENT
  Age: 16 Year
  Sex: Female

DRUGS (1)
  1. COSENTYX [Suspect]
     Active Substance: SECUKINUMAB
     Indication: Psoriasis
     Dosage: 300 MG, Q4W
     Route: 030
     Dates: start: 20231122, end: 20240404

REACTIONS (4)
  - Guttate psoriasis [Not Recovered/Not Resolved]
  - Pharyngitis streptococcal [Recovered/Resolved]
  - Hidradenitis [Unknown]
  - Nodule [Unknown]

NARRATIVE: CASE EVENT DATE: 20240120
